FAERS Safety Report 7454492-4 (Version None)
Quarter: 2011Q2

REPORT INFORMATION
  Report Type: 
  Country: None (occurrence: None)
  Receive Date: 20110503
  Receipt Date: 20110419
  Transmission Date: 20111010
  Serious: Yes (Other)
  Sender: FDA-Public Use
  Company Number: PHHY2011US34954

PATIENT
  Sex: Male

DRUGS (7)
  1. FOCALIN [Suspect]
     Dosage: 30 MG, (15 MG ONE TABLET AND 1/2 TABLET IN THE MORNING AND EVENING)
  2. FOCALIN XR [Suspect]
     Dosage: 30 MG, QD
  3. VYVANSE [Suspect]
     Indication: ATTENTION DEFICIT/HYPERACTIVITY DISORDER
     Dosage: UNK
     Dates: start: 20101214
  4. GUANFACINE HYDROCHLORIDE [Suspect]
     Dosage: 1 ML, UNK
  5. FOCALIN XR [Suspect]
     Dosage: 15 MG, UNK
  6. FOCALIN [Suspect]
     Dosage: 15 MG, UNK
     Dates: end: 20110406
  7. FOCALIN [Suspect]
     Dosage: 10 MG, BID

REACTIONS (7)
  - HALLUCINATION [None]
  - INSOMNIA [None]
  - DRUG EFFECT DECREASED [None]
  - CONSTIPATION [None]
  - FEAR [None]
  - PSYCHOTIC DISORDER [None]
  - WEIGHT DECREASED [None]
